FAERS Safety Report 17948601 (Version 1)
Quarter: 2020Q2

REPORT INFORMATION
  Report Type: Spontaneous
  Country: IT (occurrence: IT)
  Receive Date: 20200626
  Receipt Date: 20200626
  Transmission Date: 20200714
  Serious: Yes (Hospitalization)
  Sender: FDA-Public Use
  Company Number: IT-ROCHE-2629588

PATIENT
  Age: 65 Year
  Sex: Male

DRUGS (3)
  1. ROACTEMRA [Suspect]
     Active Substance: TOCILIZUMAB
     Indication: COVID-19
     Route: 042
     Dates: start: 20200320, end: 20200323
  2. KALETRA [Suspect]
     Active Substance: LOPINAVIR\RITONAVIR
     Indication: COVID-19
     Dosage: MOST RECENT DOSE PRIOR TO AE 27/MAR/2020
     Route: 065
     Dates: start: 20200317
  3. PLAQUENIL [Suspect]
     Active Substance: HYDROXYCHLOROQUINE SULFATE
     Indication: COVID-19
     Dosage: MOST RECENT DOSE PRIOR TO AE 01/APR/2020
     Route: 065
     Dates: start: 20200317

REACTIONS (3)
  - Rash [Recovered/Resolved]
  - Intentional product use issue [Unknown]
  - Off label use [Unknown]
